FAERS Safety Report 5663080-1 (Version None)
Quarter: 2008Q1

REPORT INFORMATION
  Report Type: 
  Country: None (occurrence: None)
  Receive Date: 20080313
  Receipt Date: 20080310
  Transmission Date: 20080703
  Serious: Yes (Hospitalization, Other)
  Sender: FDA-Public Use
  Company Number: US-PFIZER INC-2006122191

PATIENT
  Sex: Female
  Weight: 113.4 kg

DRUGS (5)
  1. CELEBREX [Suspect]
     Indication: OSTEOARTHRITIS
  2. BEXTRA [Suspect]
     Indication: OSTEOARTHRITIS
     Dates: start: 20011101
  3. VIOXX [Suspect]
     Indication: OSTEOARTHRITIS
     Route: 048
  4. LASIX [Concomitant]
     Indication: HYPERTENSION
  5. LASIX [Concomitant]
     Indication: OEDEMA PERIPHERAL

REACTIONS (1)
  - CEREBROVASCULAR ACCIDENT [None]
